FAERS Safety Report 9070956 (Version 2)
Quarter: 2016Q1

REPORT INFORMATION
  Report Type: Spontaneous
  Country: FR (occurrence: FR)
  Receive Date: 20130129
  Receipt Date: 20160108
  Transmission Date: 20160526
  Serious: Yes (Hospitalization, Disabling, Other)
  Sender: FDA-Public Use
  Company Number: FR-VIIV HEALTHCARE LIMITED-B0858865B

PATIENT
  Age: 0 Day

DRUGS (5)
  1. EPIVIR [Suspect]
     Active Substance: LAMIVUDINE
     Indication: HIV INFECTION
     Dosage: UNK, U
     Route: 064
     Dates: start: 20070326, end: 20070522
  2. LOPINAVIR [Suspect]
     Active Substance: LOPINAVIR
     Indication: HIV INFECTION
     Route: 064
     Dates: start: 20070326, end: 20070522
  3. RETROVIR [Suspect]
     Active Substance: ZIDOVUDINE
     Indication: ANTIVIRAL PROPHYLAXIS
     Dosage: UNK
     Route: 064
     Dates: start: 20070326, end: 20070522
  4. RETROVIR [Suspect]
     Active Substance: ZIDOVUDINE
     Dosage: 4 MG/KG, BID
     Route: 048
     Dates: end: 20070620
  5. VIDEX [Suspect]
     Active Substance: DIDANOSINE
     Indication: HIV INFECTION
     Route: 064
     Dates: start: 20070326, end: 20070522

REACTIONS (6)
  - Foetal distress syndrome [Recovered/Resolved]
  - Speech disorder developmental [Not Recovered/Not Resolved]
  - Abnormal behaviour [Not Recovered/Not Resolved]
  - Foetal exposure during pregnancy [Not Recovered/Not Resolved]
  - Neonatal respiratory distress syndrome [Recovered/Resolved]
  - Developmental delay [Not Recovered/Not Resolved]

NARRATIVE: CASE EVENT DATE: 20070522
